FAERS Safety Report 16341313 (Version 2)
Quarter: 2019Q2

REPORT INFORMATION
  Report Type: Spontaneous
  Country: IR (occurrence: IR)
  Receive Date: 20190522
  Receipt Date: 20190523
  Transmission Date: 20190711
  Serious: Yes (Other)
  Sender: FDA-Public Use
  Company Number: PHHY2019IR114556

PATIENT
  Age: 32 Year
  Sex: Female

DRUGS (1)
  1. METHOTREXATE. [Suspect]
     Active Substance: METHOTREXATE
     Indication: PLACENTA ACCRETA
     Dosage: 70 MG/M2, UNK (DILUTED IN 50 ML NORMAL SALINE)
     Route: 041

REACTIONS (2)
  - Product use in unapproved indication [Unknown]
  - Vaginal haemorrhage [Unknown]
